FAERS Safety Report 9586429 (Version 1)
Quarter: 2013Q4

REPORT INFORMATION
  Report Type: Spontaneous
  Country: US (occurrence: US)
  Receive Date: 20131003
  Receipt Date: 20131003
  Transmission Date: 20140711
  Serious: Yes (Hospitalization, Other)
  Sender: FDA-Public Use
  Company Number: US-PFIZER INC-2013281216

PATIENT
  Age: 51 Year
  Sex: Female
  Weight: 72.56 kg

DRUGS (10)
  1. DILANTIN-125 [Suspect]
     Indication: EPILEPSY
     Dosage: 250 MG, 1X/DAY
     Dates: start: 19650731, end: 1967
  2. DILANTIN-125 [Suspect]
     Dosage: 250 MG, 1X/DAY
     Dates: start: 1982
  3. DILANTIN-125 [Suspect]
     Dosage: 300 MG, 1X/DAY
     Dates: start: 199810
  4. DILANTIN [Suspect]
     Indication: EPILEPSY
     Dosage: UNK
     Route: 048
  5. DILANTIN [Suspect]
     Dosage: 300 MG, 1X/DAY
     Dates: start: 199810
  6. PHENYTOIN [Suspect]
     Indication: EPILEPSY
     Dosage: UNK
  7. PHENYTOIN [Suspect]
     Dosage: 300 MG, 1X/DAY
     Dates: start: 199810
  8. PHENOBARBITAL [Suspect]
     Indication: EPILEPSY
     Dosage: 50 MG, UNK
     Dates: start: 19650731
  9. DEPAKOTE [Suspect]
     Dosage: UNK
     Dates: start: 1998, end: 1998
  10. MYSOLINE [Suspect]
     Dosage: UNK
     Dates: start: 1967, end: 1982

REACTIONS (10)
  - Loss of consciousness [Unknown]
  - Coma [Unknown]
  - Spinal fracture [Unknown]
  - Fall [Unknown]
  - Drug intolerance [Unknown]
  - Gait disturbance [Unknown]
  - Hypoaesthesia [Unknown]
  - Hypoaesthesia [Recovering/Resolving]
  - Fracture [Unknown]
  - Fatigue [Unknown]
